FAERS Safety Report 7969266-5 (Version None)
Quarter: 2011Q4

REPORT INFORMATION
  Report Type: 
  Country: None (occurrence: None)
  Receive Date: 20111209
  Receipt Date: 20111129
  Transmission Date: 20120403
  Serious: Yes (Death, Hospitalization)
  Sender: FDA-Public Use
  Company Number: IT-ROCHE-1015428

PATIENT
  Sex: Female

DRUGS (9)
  1. ACTEMRA [Suspect]
     Indication: RHEUMATOID ARTHRITIS
     Route: 042
     Dates: start: 20100422, end: 20110902
  2. ACETAMINOPHEN [Concomitant]
  3. METHYLPREDNISOLONE [Concomitant]
  4. VFEND [Concomitant]
  5. KONAKION [Concomitant]
  6. BRONCHO-VAXOM [Concomitant]
     Route: 048
  7. MERREM [Concomitant]
  8. ZYVOX [Concomitant]
     Route: 048
  9. TRANEXAMIC ACID [Concomitant]

REACTIONS (3)
  - DISSEMINATED INTRAVASCULAR COAGULATION [None]
  - SEPTIC SHOCK [None]
  - SEPSIS [None]
